FAERS Safety Report 8122875-5 (Version None)
Quarter: 2012Q1

REPORT INFORMATION
  Report Type: 
  Country: None (occurrence: None)
  Receive Date: 20120206
  Receipt Date: 20120201
  Transmission Date: 20120608
  Serious: Yes (Other)
  Sender: FDA-Public Use
  Company Number: A0964192A

PATIENT
  Age: 34 Year
  Sex: Female

DRUGS (1)
  1. UREA PEROXIDE [Suspect]
     Dosage: AURAL

REACTIONS (5)
  - SENSORY DISTURBANCE [None]
  - EAR DISCOMFORT [None]
  - DRUG ADMINISTRATION ERROR [None]
  - HYPOACUSIS [None]
  - DEAFNESS [None]
